FAERS Safety Report 9019423 (Version 2)
Quarter: 2013Q1

REPORT INFORMATION
  Report Type: Report from Study
  Country: DE (occurrence: DE)
  Receive Date: 20130118
  Receipt Date: 20130204
  Transmission Date: 20140127
  Serious: Yes (Death, Hospitalization)
  Sender: FDA-Public Use
  Company Number: DE-ELI_LILLY_AND_COMPANY-DE201301005423

PATIENT
  Age: 74 Year
  Sex: Female
  Weight: 58 kg

DRUGS (12)
  1. PEMETREXED [Suspect]
     Indication: NON-SMALL CELL LUNG CANCER
     Dosage: 500 MG/M2, EVERY 3 WEEKS
     Route: 042
     Dates: start: 20121011, end: 20121115
  2. TARCEVA [Suspect]
     Indication: NON-SMALL CELL LUNG CANCER
     Dosage: 150 MG, QD
     Route: 048
     Dates: start: 20121219
  3. ARIXTRA [Concomitant]
     Dosage: 7.5 MG, UNK
     Dates: start: 20121106
  4. METOPROLOL [Concomitant]
     Dosage: UNK
     Dates: start: 2005
  5. SIMVASTATIN [Concomitant]
     Dosage: 10 MG, UNK
     Dates: start: 2005
  6. AMLODIPINE [Concomitant]
     Dosage: 10 MG, UNK
     Dates: start: 2007, end: 20121107
  7. AMARYL [Concomitant]
     Dosage: 1 MG, UNK
     Dates: start: 2008, end: 20121107
  8. NOVAMIN [Concomitant]
     Dosage: 500 MG, TID
     Dates: start: 201112
  9. VALORON [Concomitant]
     Dosage: 20 GTT, TID
     Dates: start: 201110
  10. IBUPROFEN [Concomitant]
     Dosage: 800 MG, PRN
     Dates: start: 201111
  11. ZOMETA [Concomitant]
     Dosage: 4 MG, MONTHLY (1/M)
     Dates: start: 20111118
  12. PANTOPRAZOLE [Concomitant]
     Dosage: 40 MG, UNK
     Dates: start: 2008

REACTIONS (3)
  - Pneumonia [Fatal]
  - Pulmonary embolism [Recovered/Resolved]
  - Pancytopenia [Recovered/Resolved]
